FAERS Safety Report 6884698-4 (Version None)
Quarter: 2010Q3

REPORT INFORMATION
  Report Type: 
  Country: None (occurrence: None)
  Receive Date: 20100729
  Receipt Date: 20070906
  Transmission Date: 20110219
  Serious: Yes (Other)
  Sender: FDA-Public Use
  Company Number: US-PFIZER INC-2007062254

PATIENT
  Sex: Female
  Weight: 52 kg

DRUGS (5)
  1. CELEBREX [Interacting]
     Indication: PERICARDITIS
     Dates: start: 20070713, end: 20070716
  2. PRILOSEC [Interacting]
     Indication: PROPHYLAXIS
     Dates: start: 20070713
  3. MOBIC [Suspect]
     Indication: PERICARDITIS
     Dates: start: 20070725
  4. AMBIEN [Concomitant]
     Indication: SLEEP DISORDER
  5. LIBRAX [Concomitant]
     Indication: GASTRIC DISORDER

REACTIONS (7)
  - AGITATION [None]
  - DIZZINESS [None]
  - DRUG INTERACTION [None]
  - MALAISE [None]
  - PALPITATIONS [None]
  - TENSION [None]
  - THINKING ABNORMAL [None]
